FAERS Safety Report 6075082-4 (Version None)
Quarter: 2009Q1

REPORT INFORMATION
  Report Type: 
  Country: None (occurrence: None)
  Receive Date: 20090212
  Receipt Date: 20090209
  Transmission Date: 20090719
  Serious: Yes (Other)
  Sender: FDA-Public Use
  Company Number: US-ASTRAZENECA-2009UW03780

PATIENT
  Age: 30268 Day
  Sex: Female

DRUGS (2)
  1. PULMICORT FLEXHALER [Suspect]
     Route: 055
     Dates: start: 20040706
  2. NEXIUM [Suspect]
     Route: 048
     Dates: start: 20040706

REACTIONS (1)
  - SURGERY [None]
